FAERS Safety Report 6394281-5 (Version None)
Quarter: 2009Q4

REPORT INFORMATION
  Report Type: 
  Country: None (occurrence: None)
  Receive Date: 20091008
  Receipt Date: 20091002
  Transmission Date: 20100525
  Serious: No
  Sender: FDA-Public Use
  Company Number: US-B.I. PHARMACEUTICALS,INC./RIDGEFIELD-2009-BP-11569BP

PATIENT

DRUGS (4)
  1. VIRAMUNE [Suspect]
     Indication: HIV INFECTION
     Dates: start: 20051101
  2. 3TC [Suspect]
     Indication: HIV INFECTION
     Dates: start: 20051101
  3. 4DT [Suspect]
     Indication: HIV INFECTION
     Dates: start: 20051101
  4. COMBIVIR [Suspect]
     Indication: HIV INFECTION

REACTIONS (2)
  - HEADACHE [None]
  - NEUROPATHY PERIPHERAL [None]
